FAERS Safety Report 21570528 (Version 2)
Quarter: 2022Q4

REPORT INFORMATION
  Report Type: Spontaneous
  Country: US (occurrence: US)
  Receive Date: 20221109
  Receipt Date: 20221115
  Transmission Date: 20230112
  Serious: No
  Sender: FDA-Public Use
  Company Number: US-JNJFOC-20221114577

PATIENT
  Age: 50 Year
  Sex: Female

DRUGS (3)
  1. UPTRAVI [Suspect]
     Active Substance: SELEXIPAG
     Indication: Pulmonary arterial hypertension
     Route: 048
     Dates: start: 20221013
  2. AMBRISENTAN [Suspect]
     Active Substance: AMBRISENTAN
     Indication: Pulmonary arterial hypertension
     Route: 065
     Dates: start: 20221004
  3. ADCIRCA [Concomitant]
     Active Substance: TADALAFIL
     Dates: start: 202209

REACTIONS (5)
  - Headache [Unknown]
  - Pain in jaw [Unknown]
  - Diarrhoea [Unknown]
  - Urticaria [Unknown]
  - Pruritus [Unknown]
